FAERS Safety Report 6498773-X (Version None)
Quarter: 2009Q4

REPORT INFORMATION
  Report Type: 
  Country: None (occurrence: None)
  Receive Date: 20091215
  Receipt Date: 20091209
  Transmission Date: 20100525
  Serious: Yes (Death)
  Sender: FDA-Public Use
  Company Number: US-CELGENEUS-163-20785-09091974

PATIENT
  Sex: Female

DRUGS (3)
  1. THALOMID [Suspect]
     Indication: MULTIPLE MYELOMA
     Route: 048
     Dates: start: 20090101, end: 20090101
  2. THALOMID [Suspect]
     Route: 048
     Dates: start: 20070901, end: 20070101
  3. THALOMID [Suspect]
     Route: 048
     Dates: start: 20080601, end: 20080101

REACTIONS (1)
  - NON-SMALL CELL LUNG CANCER [None]
